FAERS Safety Report 9238637 (Version 1)
Quarter: 2013Q1

REPORT INFORMATION
  Report Type: Spontaneous
  Country: US (occurrence: None)
  Receive Date: 20121106
  Receipt Date: 20121106
  Transmission Date: 20140127
  Serious: No
  Sender: FDA-Public Use
  Company Number: 1000037728

PATIENT
  Age: 75 Year
  Sex: Male

DRUGS (5)
  1. DALIRESP [Suspect]
     Indication: CHRONIC OBSTRUCTIVE PULMONARY DISEASE
     Route: 048
     Dates: start: 20120703, end: 201207
  2. FISH OIL (FISH OIL) (FISH OIL) [Concomitant]
  3. FOLIC ACID (FOLIC ACID) (FOLIC ACID) [Concomitant]
  4. VITAMIN D (VITAMIN D) (VITAMIN D) [Concomitant]
  5. ASPIRIN (ACETYLYSALICYLIC ACID) (ACETYLSALICYLIC ACID) [Concomitant]

REACTIONS (1)
  - Dizziness [None]
